FAERS Safety Report 20124796 (Version 1)
Quarter: 2021Q4

REPORT INFORMATION
  Report Type: Spontaneous
  Country: CN (occurrence: None)
  Receive Date: 20211129
  Receipt Date: 20211129
  Transmission Date: 20220303
  Serious: Yes (Other)
  Sender: FDA-Public Use
  Company Number: CN-ROCHE-2964251

PATIENT
  Age: 53 Year
  Sex: Female

DRUGS (38)
  1. MABTHERA [Suspect]
     Active Substance: RITUXIMAB
     Indication: Diffuse large B-cell lymphoma
     Dosage: ON DAY 0
     Route: 065
     Dates: start: 20201226
  2. MABTHERA [Suspect]
     Active Substance: RITUXIMAB
     Dosage: ON DAY 0
     Route: 065
     Dates: start: 20210122
  3. MABTHERA [Suspect]
     Active Substance: RITUXIMAB
     Dosage: ON 17 MAR 2021 AND 08 APR 2021, ON DAY 0
     Route: 065
  4. MABTHERA [Suspect]
     Active Substance: RITUXIMAB
     Dosage: ON DAY 0
     Route: 065
     Dates: start: 20210429
  5. MABTHERA [Suspect]
     Active Substance: RITUXIMAB
     Dosage: ON DAY 0
     Route: 065
     Dates: start: 20210521
  6. MABTHERA [Suspect]
     Active Substance: RITUXIMAB
     Dosage: ON 30 JUN 2021 AND 14 JUL 2021, ON DAY 0
     Route: 065
  7. MABTHERA [Suspect]
     Active Substance: RITUXIMAB
     Dosage: ZR2 REGIMEN
     Route: 065
  8. GAZYVA [Suspect]
     Active Substance: OBINUTUZUMAB
     Indication: Diffuse large B-cell lymphoma
     Dosage: ON DAY 1
     Route: 042
     Dates: start: 20211104
  9. CYCLOPHOSPHAMIDE [Concomitant]
     Active Substance: CYCLOPHOSPHAMIDE
     Indication: Diffuse large B-cell lymphoma
     Dosage: ON DAY 1
     Route: 065
     Dates: start: 20201226
  10. CYCLOPHOSPHAMIDE [Concomitant]
     Active Substance: CYCLOPHOSPHAMIDE
     Dosage: ON DAY 1
     Dates: start: 20210122
  11. CYCLOPHOSPHAMIDE [Concomitant]
     Active Substance: CYCLOPHOSPHAMIDE
     Dosage: ON 17 MAR 2021 AND 08 APR 2021, ON DAY 1
  12. VINCRISTINE [Concomitant]
     Active Substance: VINCRISTINE
     Indication: Diffuse large B-cell lymphoma
     Dosage: ON DAY 1
     Dates: start: 20201226
  13. VINCRISTINE [Concomitant]
     Active Substance: VINCRISTINE
     Dosage: ON DAY 1
     Dates: start: 20210122
  14. VINDESINE [Concomitant]
     Active Substance: VINDESINE
     Indication: Diffuse large B-cell lymphoma
     Dosage: ON 17 MAR 2021 AND 08 APR 2021, ON DAY 1
  15. EPIRUBICIN [Concomitant]
     Active Substance: EPIRUBICIN
     Indication: Diffuse large B-cell lymphoma
     Dosage: ON DAY 1
     Dates: start: 20201226
  16. EPIRUBICIN [Concomitant]
     Active Substance: EPIRUBICIN
     Dosage: ON DAY 1
     Dates: start: 20210122
  17. EPIRUBICIN [Concomitant]
     Active Substance: EPIRUBICIN
     Dosage: ON 17 MAR 2021 AND 08 APR 2021, ON DAY 1
  18. DEXAMETHASONE [Concomitant]
     Active Substance: DEXAMETHASONE
     Indication: Diffuse large B-cell lymphoma
     Dosage: ON DAY 1-5
     Dates: start: 20201226
  19. DEXAMETHASONE [Concomitant]
     Active Substance: DEXAMETHASONE
     Dosage: ON DAY 1-5
     Dates: start: 20210122
  20. DEXAMETHASONE [Concomitant]
     Active Substance: DEXAMETHASONE
     Dosage: ON 17 MAR 2021 AND 08 APR 2021, ON DAY 1-5
  21. DEXAMETHASONE [Concomitant]
     Active Substance: DEXAMETHASONE
     Dosage: ON DAY 1-4
     Dates: start: 20210429
  22. DEXAMETHASONE [Concomitant]
     Active Substance: DEXAMETHASONE
     Dosage: ON 30 JUN 2021 AND 14 JUL 2021, ON DAY 1-4
  23. GEMCITABINE [Concomitant]
     Active Substance: GEMCITABINE
     Indication: Diffuse large B-cell lymphoma
     Dosage: ON DAY 1, 8
     Dates: start: 20210429
  24. GEMCITABINE [Concomitant]
     Active Substance: GEMCITABINE
     Dosage: ON 30 JUN 2021 AND 14 JUL 2021, ON DAY 1
  25. CISPLATIN [Concomitant]
     Active Substance: CISPLATIN
     Indication: Diffuse large B-cell lymphoma
     Dosage: ON DAY 1
     Dates: start: 20210429
  26. CISPLATIN [Concomitant]
     Active Substance: CISPLATIN
     Dosage: ON DAY 1-4
     Dates: start: 20210521
  27. ETOPOSIDE [Concomitant]
     Active Substance: ETOPOSIDE
     Indication: Diffuse large B-cell lymphoma
     Dosage: ON DAY 1-4
     Dates: start: 20210521
  28. METHYLPREDNISOLONE [Concomitant]
     Active Substance: METHYLPREDNISOLONE
     Indication: Diffuse large B-cell lymphoma
     Dosage: ON DAY 1-3
     Dates: start: 20210521
  29. CYTARABINE [Concomitant]
     Active Substance: CYTARABINE
     Indication: Diffuse large B-cell lymphoma
     Dosage: ON DAY 5
     Dates: start: 20210521
  30. ZANUBRUTINIB [Concomitant]
     Active Substance: ZANUBRUTINIB
     Indication: Diffuse large B-cell lymphoma
     Dosage: ON 30 JUN 2021 AND 14 JUL 2021
  31. ZANUBRUTINIB [Concomitant]
     Active Substance: ZANUBRUTINIB
     Dosage: ZR2 REGIMEN
     Dates: end: 202109
  32. LENALIDOMIDE [Concomitant]
     Active Substance: LENALIDOMIDE
     Indication: Diffuse large B-cell lymphoma
     Dosage: ON 30 JUN 2021 AND 14 JUL 2021
  33. LENALIDOMIDE [Concomitant]
     Active Substance: LENALIDOMIDE
     Dosage: ZR2 REGIMEN
     Dates: end: 202109
  34. OXALIPLATIN [Concomitant]
     Active Substance: OXALIPLATIN
     Indication: Diffuse large B-cell lymphoma
     Dosage: ON 30 JUN 2021 AND 14 JUL 2021, ON DAY 1
  35. PENPULIMAB [Concomitant]
     Active Substance: PENPULIMAB
     Indication: Diffuse large B-cell lymphoma
     Dosage: ON 10 SEP 2021, 30 SEP 2021 AND 22 OCT 2021, ON DAY 1
  36. CATEQUENTINIB [Concomitant]
     Active Substance: CATEQUENTINIB
     Indication: Diffuse large B-cell lymphoma
     Dosage: ON 10 SEP 2021, 30 SEP 2021 AND 22 OCT 2021, ON DAY 1-10
     Route: 048
  37. TUCIDINOSTAT [Concomitant]
     Active Substance: TUCIDINOSTAT
     Indication: Diffuse large B-cell lymphoma
     Route: 048
     Dates: start: 20211120
  38. CAPECITABINE [Concomitant]
     Active Substance: CAPECITABINE
     Indication: Diffuse large B-cell lymphoma
     Dosage: ON DAY 1-14
     Route: 048
     Dates: start: 20211120

REACTIONS (1)
  - Myelosuppression [Unknown]
